FAERS Safety Report 4392792-5 (Version None)
Quarter: 2004Q3

REPORT INFORMATION
  Report Type: 
  Country: None (occurrence: None)
  Receive Date: 20040702
  Receipt Date: 20040317
  Transmission Date: 20050211
  Serious: Yes (Other)
  Sender: FDA-Public Use
  Company Number: 2004UW05075

PATIENT
  Age: 73 Year
  Sex: Female
  Weight: 77.1115 kg

DRUGS (6)
  1. CRESTOR [Suspect]
     Indication: BLOOD CHOLESTEROL INCREASED
     Dosage: 20 MG DAILY PO
     Route: 048
     Dates: start: 20040101, end: 20040316
  2. TOPROL-XL [Concomitant]
  3. COUMADIN [Concomitant]
  4. DIGITEK [Concomitant]
  5. FUROSEMIDE [Concomitant]
  6. COZAAR [Concomitant]

REACTIONS (4)
  - DIFFICULTY IN WALKING [None]
  - DYSPEPSIA [None]
  - HAEMORRHOIDS [None]
  - MYALGIA [None]
